FAERS Safety Report 10136312 (Version 2)
Quarter: 2014Q2

REPORT INFORMATION
  Report Type: Spontaneous
  Country: JP (occurrence: JP)
  Receive Date: 20140429
  Receipt Date: 20140507
  Transmission Date: 20141212
  Serious: Yes (Death)
  Sender: FDA-Public Use
  Company Number: JP-JNJFOC-20140414439

PATIENT
  Age: 10 Decade
  Sex: Female

DRUGS (1)
  1. DUROTEP MT [Suspect]
     Indication: PAIN
     Route: 062
     Dates: start: 201206, end: 201404

REACTIONS (1)
  - Road traffic accident [Fatal]
